FAERS Safety Report 21402559 (Version 1)
Quarter: 2022Q4

REPORT INFORMATION
  Report Type: Report from Study
  Country: US (occurrence: US)
  Receive Date: 20221003
  Receipt Date: 20221003
  Transmission Date: 20230112
  Serious: Yes (Other)
  Sender: FDA-Public Use
  Company Number: US-ABBVIE-4134622

PATIENT
  Sex: Female

DRUGS (3)
  1. SKYRIZI [Suspect]
     Active Substance: RISANKIZUMAB-RZAA
     Indication: Psoriasis
     Route: 058
  2. Moderna [Concomitant]
     Indication: COVID-19 immunisation
     Dosage: TIME INTERVAL: TOTAL: 1ST DOSE
     Route: 030
  3. Moderna [Concomitant]
     Indication: COVID-19 immunisation
     Dosage: TIME INTERVAL: TOTAL: 2ND DOSE
     Route: 030

REACTIONS (2)
  - Catheter placement [Unknown]
  - Dementia [Unknown]
